FAERS Safety Report 7177274-X (Version None)
Quarter: 2010Q4

REPORT INFORMATION
  Report Type: 
  Country: None (occurrence: None)
  Receive Date: 20101220
  Receipt Date: 20101215
  Transmission Date: 20110411
  Serious: Yes (Other)
  Sender: FDA-Public Use
  Company Number: BR-ROCHE-748546

PATIENT
  Sex: Male
  Weight: 77 kg

DRUGS (8)
  1. RIVOTRIL [Suspect]
     Route: 065
     Dates: start: 20100201, end: 20101117
  2. RIVOTRIL [Suspect]
     Dosage: AT NIGHT
     Route: 065
     Dates: start: 20101118, end: 20101201
  3. ASPIRIN [Concomitant]
     Dosage: 2 TABLETS AFTER LUNCH
     Dates: start: 20080101
  4. MONOCORDIL [Concomitant]
     Dosage: 1 TABLET AT 8:00 AND 1 TABLET AT 16:00
     Dates: start: 20090630
  5. SIMVASTATIN [Concomitant]
     Dosage: 1 TABLET AT 21:00
     Dates: start: 20100630
  6. ATENOLOL [Concomitant]
     Indication: HYPERTENSION
     Dosage: 1 TABLET AT 9:00
     Dates: start: 20100822
  7. ENALAPRIL [Concomitant]
     Indication: HYPERTENSION
     Dosage: 1 TABLET IN MORNING AND 1 TABLET AT 21:00
     Dates: start: 20100630
  8. OMEPRAZOLE [Concomitant]
     Dosage: 1 TABLET/FASTING, INDICATION: STOMACH
     Dates: start: 20100630

REACTIONS (3)
  - CARDIAC VALVE DISEASE [None]
  - DYSPNOEA [None]
  - PERICARDIAL DISEASE [None]
